FAERS Safety Report 19419215 (Version 1)
Quarter: 2021Q2

REPORT INFORMATION
  Report Type: Spontaneous
  Country: SE (occurrence: TW)
  Receive Date: 20210615
  Receipt Date: 20210615
  Transmission Date: 20210717
  Serious: Yes (Congenital Anomaly, Other)
  Sender: FDA-Public Use
  Company Number: SE-PFIZER INC-2021653755

PATIENT

DRUGS (3)
  1. VALPROIC ACID. [Suspect]
     Active Substance: VALPROIC ACID
     Dosage: DURING 2ND, 3RD TRIMESTER OF PREGNANCY
     Route: 064
  2. VALPROIC ACID. [Suspect]
     Active Substance: VALPROIC ACID
     Dosage: 1500 MG, 1X/DAY (FIRST TRIMESTER)
     Route: 064
  3. PHENYTOIN SODIUM. [Suspect]
     Active Substance: PHENYTOIN SODIUM
     Dosage: DURING 1ST, 2ND, 3RD TRIMESTER OF PREGNANCY
     Route: 064

REACTIONS (5)
  - Maternal exposure during pregnancy [Unknown]
  - Craniosynostosis [Unknown]
  - Marfan^s syndrome [Unknown]
  - Syndactyly [Unknown]
  - Polydactyly [Unknown]
